FAERS Safety Report 16678005 (Version 1)
Quarter: 2019Q3

REPORT INFORMATION
  Report Type: Spontaneous
  Country: IT (occurrence: IT)
  Receive Date: 20190807
  Receipt Date: 20190807
  Transmission Date: 20191004
  Serious: Yes (Other)
  Sender: FDA-Public Use
  Company Number: IT-BAYER-2019-142625

PATIENT
  Age: 28 Year
  Sex: Female

DRUGS (5)
  1. SPASMEX [PHLOROGLUCINOL;TRIMETHYLPHLOROGLUCINOL] [Suspect]
     Active Substance: PHLOROGLUCINOL\1,3,5-TRIMETHOXYBENZENE
     Indication: DRUG ABUSE
     Dosage: 320 MG, UNK
     Route: 048
     Dates: start: 20190208
  2. CIPROXIN 500 MG [Suspect]
     Active Substance: CIPROFLOXACIN
     Indication: DRUG ABUSE
     Dosage: 1 G, UNK
     Route: 048
     Dates: start: 20190208
  3. AUGMENTIN [Suspect]
     Active Substance: AMOXICILLIN\CLAVULANATE POTASSIUM
     Indication: DRUG ABUSE
     Dosage: 2 G, UNK
     Route: 048
     Dates: start: 20190208
  4. DELTACORTENE [Suspect]
     Active Substance: PREDNISONE
     Indication: DRUG ABUSE
     Dosage: 50 MG, UNK
     Route: 048
     Dates: start: 20190208
  5. MACLADIN [Suspect]
     Active Substance: CLARITHROMYCIN
     Indication: DRUG ABUSE
     Dosage: 1 G, UNK
     Route: 048
     Dates: start: 20190208

REACTIONS (4)
  - Toxicity to various agents [Recovering/Resolving]
  - Blood pressure decreased [Recovering/Resolving]
  - Drug abuse [Recovering/Resolving]
  - Tachycardia [Recovering/Resolving]

NARRATIVE: CASE EVENT DATE: 20190208
